FAERS Safety Report 4524486-7 (Version None)
Quarter: 2004Q4

REPORT INFORMATION
  Report Type: 
  Country: None (occurrence: None)
  Receive Date: 20041117
  Receipt Date: 20040114
  Transmission Date: 20050328
  Serious: Yes (Other)
  Sender: FDA-Public Use
  Company Number: US-JNJFOC-20031002578

PATIENT
  Age: 59 Year
  Sex: Female
  Weight: 58.0604 kg

DRUGS (3)
  1. LEVAQUIN [Suspect]
  2. ANTACID (ANTACIDS) [Concomitant]
  3. ATROVENT [Concomitant]

REACTIONS (3)
  - CONFUSIONAL STATE [None]
  - INCONTINENCE [None]
  - LOSS OF CONSCIOUSNESS [None]
